FAERS Safety Report 8525842-2 (Version None)
Quarter: 2012Q3

REPORT INFORMATION
  Report Type: 
  Country: None (occurrence: None)
  Receive Date: 20120720
  Receipt Date: 20120712
  Transmission Date: 20120928
  Serious: Yes (Other)
  Sender: FDA-Public Use
  Company Number: US-ELI_LILLY_AND_COMPANY-US201110007773

PATIENT
  Sex: Female
  Weight: 70.295 kg

DRUGS (7)
  1. BYETTA [Suspect]
     Indication: INSULIN-REQUIRING TYPE 2 DIABETES MELLITUS
     Dosage: 5 UG, BID
     Route: 058
     Dates: start: 20080701
  2. HUMALOG [Concomitant]
     Dosage: UNK
  3. VICTOZA [Concomitant]
     Dosage: UNK
  4. BYETTA [Suspect]
     Dosage: 10 UG, BID
     Route: 058
     Dates: end: 20120401
  5. LANTUS [Concomitant]
     Dosage: UNK
  6. NOVOLOG [Concomitant]
     Dosage: UNK
  7. NOVOLOG MIX 70/30 [Concomitant]

REACTIONS (17)
  - INTENTIONAL DRUG MISUSE [None]
  - BLOOD GLUCOSE DECREASED [None]
  - FATIGUE [None]
  - NAUSEA [None]
  - WEIGHT DECREASED [None]
  - WEIGHT INCREASED [None]
  - DYSPEPSIA [None]
  - DRUG EFFECT DECREASED [None]
  - HEADACHE [None]
  - IMPAIRED INSULIN SECRETION [None]
  - HUNGER [None]
  - NERVOUSNESS [None]
  - BLOOD GLUCOSE INCREASED [None]
  - INSULIN C-PEPTIDE DECREASED [None]
  - CONSTIPATION [None]
  - ABDOMINAL DISCOMFORT [None]
  - OFF LABEL USE [None]
